FAERS Safety Report 5727602-4 (Version None)
Quarter: 2008Q2

REPORT INFORMATION
  Report Type: 
  Country: None (occurrence: None)
  Receive Date: 20080505
  Receipt Date: 20080423
  Transmission Date: 20081010
  Serious: Yes (Disabling)
  Sender: FDA-Public Use
  Company Number: FR-WYE-H03896908

PATIENT
  Age: 70 Year
  Sex: Female
  Weight: 45 kg

DRUGS (2)
  1. PANTOPRAZOLE SODIUM [Suspect]
     Indication: GASTRITIS
     Route: 048
     Dates: end: 20070101
  2. PANTOPRAZOLE SODIUM [Suspect]
     Route: 048
     Dates: start: 20070101

REACTIONS (5)
  - ABDOMINAL PAIN [None]
  - DRY MOUTH [None]
  - FLATULENCE [None]
  - FREQUENT BOWEL MOVEMENTS [None]
  - WEIGHT DECREASED [None]
